FAERS Safety Report 23606520 (Version 3)
Quarter: 2024Q2

REPORT INFORMATION
  Report Type: Report from Study
  Country: US (occurrence: US)
  Receive Date: 20240307
  Receipt Date: 20240621
  Transmission Date: 20240716
  Serious: Yes (Hospitalization)
  Sender: FDA-Public Use
  Company Number: US-AMGEN-USASP2024044384

PATIENT
  Age: 79 Year
  Sex: Female

DRUGS (3)
  1. ENBREL [Suspect]
     Active Substance: BENZYL ALCOHOL\ETANERCEPT
     Indication: Polymyalgia rheumatica
     Dosage: 50 MILLIGRAM, QWK
     Route: 058
     Dates: start: 2021
  2. ENBREL [Suspect]
     Active Substance: BENZYL ALCOHOL\ETANERCEPT
     Indication: Arthritis
  3. ENBREL [Suspect]
     Active Substance: BENZYL ALCOHOL\ETANERCEPT
     Indication: Off label use

REACTIONS (5)
  - Hip fracture [Unknown]
  - Fall [Unknown]
  - Off label use [Unknown]
  - Urinary tract infection [Unknown]
  - Anaemia [Not Recovered/Not Resolved]

NARRATIVE: CASE EVENT DATE: 20210101
